FAERS Safety Report 18972993 (Version 1)
Quarter: 2021Q1

REPORT INFORMATION
  Report Type: Report from Study
  Country: GB (occurrence: GB)
  Receive Date: 20210305
  Receipt Date: 20210305
  Transmission Date: 20210420
  Serious: Yes (Death)
  Sender: FDA-Public Use
  Company Number: GB-BAUSCH-BL-2021-007728

PATIENT
  Age: 68 Year
  Sex: Female

DRUGS (2)
  1. KYNTHEUM [Suspect]
     Active Substance: BRODALUMAB
     Route: 058
  2. KYNTHEUM [Suspect]
     Active Substance: BRODALUMAB
     Indication: PSORIASIS
     Dosage: 210MG WEEK 0, 1, 2 AND THEN EVERY TWO WEEKS
     Route: 058
     Dates: start: 2019

REACTIONS (1)
  - Death [Fatal]

NARRATIVE: CASE EVENT DATE: 202102
